FAERS Safety Report 8455787-8 (Version None)
Quarter: 2012Q2

REPORT INFORMATION
  Report Type: 
  Country: None (occurrence: None)
  Receive Date: 20120621
  Receipt Date: 20120608
  Transmission Date: 20120825
  Serious: Yes (Hospitalization, Other)
  Sender: FDA-Public Use
  Company Number: US-PFIZER INC-2009314329

PATIENT
  Sex: Female

DRUGS (5)
  1. LASIX [Concomitant]
     Indication: RENAL DISORDER
     Dosage: UNK
     Dates: start: 20080923
  2. DILANTIN [Suspect]
     Indication: CONVULSION
     Dosage: 100 MG, 2X/DAY
     Route: 042
     Dates: start: 20080924, end: 20080928
  3. NOVOLIN 70/30 [Concomitant]
     Indication: DIABETES MELLITUS
     Dosage: 20UNITS IN THE MORNING AND AFTERNOON
     Dates: start: 20080923
  4. KEPPRA [Concomitant]
     Indication: CONVULSION
     Dosage: UNK
     Dates: start: 20080924, end: 20081030
  5. SIMVASTATIN [Concomitant]
     Indication: CARDIAC FAILURE CONGESTIVE
     Dosage: 80 MG, UNK
     Dates: start: 20080924

REACTIONS (1)
  - STEVENS-JOHNSON SYNDROME [None]
